FAERS Safety Report 10130431 (Version 2)
Quarter: 2014Q2

REPORT INFORMATION
  Report Type: Spontaneous
  Country: US (occurrence: US)
  Receive Date: 20140428
  Receipt Date: 20140502
  Transmission Date: 20141212
  Serious: Yes (Death, Hospitalization, Other)
  Sender: FDA-Public Use
  Company Number: US-009507513-1404USA012747

PATIENT
  Age: 65 Year
  Sex: Male

DRUGS (2)
  1. TEMODAR [Suspect]
     Indication: BRAIN NEOPLASM
     Dosage: UNK
     Route: 048
     Dates: start: 20140110
  2. TEMODAR [Suspect]
     Dosage: UNK
     Route: 048
     Dates: start: 20140317

REACTIONS (1)
  - Brain neoplasm malignant [Fatal]
